FAERS Safety Report 5573405-3 (Version None)
Quarter: 2007Q4

REPORT INFORMATION
  Report Type: 
  Country: None (occurrence: None)
  Receive Date: 20071226
  Receipt Date: 20071218
  Transmission Date: 20080405
  Serious: Yes (Hospitalization, Disabling, Other)
  Sender: FDA-Public Use
  Company Number: US-JNJFOC-20071007981

PATIENT
  Sex: Male
  Weight: 79.38 kg

DRUGS (5)
  1. LEVAQUIN [Suspect]
     Indication: CYSTOSCOPY
     Route: 048
  2. CRESTOR [Concomitant]
     Indication: BLOOD CHOLESTEROL
     Route: 065
  3. ENEBREL [Concomitant]
     Indication: RHEUMATOID ARTHRITIS
     Route: 065
  4. CELEBREX [Concomitant]
     Indication: RHEUMATOID ARTHRITIS
     Route: 065
  5. ULTRAM [Concomitant]
     Indication: PAIN
     Route: 065

REACTIONS (5)
  - MUSCLE INJURY [None]
  - RENAL FAILURE [None]
  - RHEUMATOID ARTHRITIS [None]
  - ROTATOR CUFF SYNDROME [None]
  - TENDON RUPTURE [None]
